FAERS Safety Report 20627727 (Version 1)
Quarter: 2022Q1

REPORT INFORMATION
  Report Type: Spontaneous
  Country: CN (occurrence: None)
  Receive Date: 20220323
  Receipt Date: 20220323
  Transmission Date: 20220423
  Serious: Yes (Other)
  Sender: FDA-Public Use
  Company Number: CN-ROCHE-3050026

PATIENT
  Age: 79 Year
  Sex: Male
  Weight: 60.2 kg

DRUGS (1)
  1. XELODA [Suspect]
     Active Substance: CAPECITABINE
     Indication: Rectal cancer
     Route: 048
     Dates: start: 20220110, end: 20220124

REACTIONS (1)
  - Monoparesis [Recovering/Resolving]

NARRATIVE: CASE EVENT DATE: 20220124
